FAERS Safety Report 9043801 (Version 1)
Quarter: 2013Q1

REPORT INFORMATION
  Report Type: Report from Study
  Country: US (occurrence: US)
  Receive Date: 20130129
  Receipt Date: 20130129
  Transmission Date: 20140127
  Serious: No
  Sender: FDA-Public Use
  Company Number: US-ABBOTT-12P-163-0913353-00

PATIENT
  Age: 62 Year
  Sex: Male

DRUGS (19)
  1. HUMIRA 40 MG/0.8 ML PEN [Suspect]
     Indication: PSORIASIS
     Dates: start: 201112
  2. HUMIRA 40 MG/0.8 ML PEN [Suspect]
     Dates: start: 20120308
  3. AMITRIPTYLINE HCL [Concomitant]
     Indication: ANXIETY
     Dosage: 50 MG DAILY
  4. ASPIRIN [Concomitant]
     Indication: HYPERTENSION
     Dosage: 81 MG DAILY
  5. BUPROPION [Concomitant]
     Indication: DEPRESSION
     Dosage: TWICE DAILY
  6. CREON [Concomitant]
     Indication: PRODUCT USED FOR UNKNOWN INDICATION
     Dosage: 2400 UNITS- 2 TABS THREE TIMES DAILY
  7. GLYBURIDE [Concomitant]
     Indication: TYPE 2 DIABETES MELLITUS
     Dosage: 5 MG DAILY
  8. HYDROCODONE/ACETAMINOPHEN [Concomitant]
     Indication: BACK PAIN
     Dosage: 5/500 MG AS REQUIRED
  9. LIDOCAINE 5% EXTERNAL [Concomitant]
     Indication: HAEMORRHOIDS
  10. LORAZEPAM [Concomitant]
     Indication: ANXIETY
     Dosage: 1 MG DAILY
  11. METFORMIN [Concomitant]
     Indication: TYPE 2 DIABETES MELLITUS
  12. METHOTREXATE [Concomitant]
     Indication: PSORIASIS
  13. METOPROLOL [Concomitant]
     Indication: HYPERTENSION
  14. PROMETHAZINE HCL [Concomitant]
     Indication: NAUSEA
     Dosage: 12.5 MG EVERY 8 HRS. AS REQUIRED
  15. PROMETHAZINE HCL [Concomitant]
     Indication: VOMITING
  16. OXYCODONE [Concomitant]
     Indication: PAIN
     Dosage: 5/325 MG X 2 TABS EVERY 6 HRS. AS REQUIRED
  17. SIMVASTATIN [Concomitant]
     Indication: BLOOD CHOLESTEROL INCREASED
  18. SINGULAIR [Concomitant]
     Indication: PRODUCT USED FOR UNKNOWN INDICATION
  19. TRICOR [Concomitant]
     Indication: PRODUCT USED FOR UNKNOWN INDICATION

REACTIONS (4)
  - Bronchitis [Recovering/Resolving]
  - Upper respiratory tract infection [Not Recovered/Not Resolved]
  - Back pain [Not Recovered/Not Resolved]
  - Psoriatic arthropathy [Not Recovered/Not Resolved]
